FAERS Safety Report 19434151 (Version 1)
Quarter: 2021Q2

REPORT INFORMATION
  Report Type: Spontaneous
  Country: US (occurrence: US)
  Receive Date: 20210617
  Receipt Date: 20210617
  Transmission Date: 20210717
  Serious: No
  Sender: FDA-Public Use
  Company Number: US-ROCHE-2579227

PATIENT
  Sex: Female

DRUGS (4)
  1. AMLODIPINE [Concomitant]
     Active Substance: AMLODIPINE BESYLATE
     Dosage: B SUS 1 MG/ML
  2. ACTEMRA [Suspect]
     Active Substance: TOCILIZUMAB
     Indication: GIANT CELL ARTERITIS
     Dosage: 162 MG 0.9 ML SQ
     Route: 058
     Dates: start: 20190213
  3. PREDNISONE. [Concomitant]
     Active Substance: PREDNISONE
  4. COREG [Concomitant]
     Active Substance: CARVEDILOL

REACTIONS (1)
  - Illness [Not Recovered/Not Resolved]
